FAERS Safety Report 21829075 (Version 3)
Quarter: 2023Q2

REPORT INFORMATION
  Report Type: Report from Study
  Country: US (occurrence: None)
  Receive Date: 20230106
  Receipt Date: 20230615
  Transmission Date: 20230722
  Serious: Yes (Life-Threatening)
  Sender: FDA-Public Use
  Company Number: US-ROCHE-3257227

PATIENT
  Age: 62 Year
  Sex: Female
  Weight: 71.7 kg

DRUGS (4)
  1. ATEZOLIZUMAB [Suspect]
     Active Substance: ATEZOLIZUMAB
     Indication: Adenocarcinoma of colon
     Dosage: CURRENT TREATMENT DATE 10/MAY/2023
     Route: 041
     Dates: start: 20221214
  2. OXALIPLATIN [Suspect]
     Active Substance: OXALIPLATIN
     Indication: Adenocarcinoma of colon
     Dosage: CURRENT TREATMENT DATE 10/MAY/2023
     Route: 042
     Dates: start: 20221214
  3. LEUCOVORIN CALCIUM [Suspect]
     Active Substance: LEUCOVORIN CALCIUM
     Indication: Adenocarcinoma of colon
     Dosage: CURRENT TREATMENT DATE 10/MAY/2023
     Route: 042
     Dates: start: 20221214
  4. FLUOROURACIL [Suspect]
     Active Substance: FLUOROURACIL
     Indication: Adenocarcinoma of colon
     Dosage: CURRENT TREATMENT DATE 10/MAY/2023
     Route: 042
     Dates: start: 20221214

REACTIONS (1)
  - Anaphylactic reaction [Recovered/Resolved with Sequelae]

NARRATIVE: CASE EVENT DATE: 20221214
